FAERS Safety Report 14762915 (Version 1)
Quarter: 2018Q2

REPORT INFORMATION
  Report Type: Spontaneous
  Country: US (occurrence: US)
  Receive Date: 20180409
  Receipt Date: 20180409
  Transmission Date: 20180711
  Serious: Yes (Hospitalization)
  Sender: FDA-Public Use
  Company Number: None

PATIENT
  Age: 56 Year
  Sex: Female

DRUGS (27)
  1. FAMOTIDINE. [Concomitant]
     Active Substance: FAMOTIDINE
  2. LOSARTAN. [Concomitant]
     Active Substance: LOSARTAN
  3. VITAMIN B12 [Concomitant]
     Active Substance: CYANOCOBALAMIN
  4. ALBUTEROL. [Concomitant]
     Active Substance: ALBUTEROL
  5. DULOXETINE. [Concomitant]
     Active Substance: DULOXETINE
  6. CALCIUM +D3 [Concomitant]
     Active Substance: CALCIUM\CHOLECALCIFEROL
  7. DICYCLOMINE [Concomitant]
     Active Substance: DICYCLOMINE HYDROCHLORIDE
  8. GABAPENTIN. [Concomitant]
     Active Substance: GABAPENTIN
  9. HYDROCO/APAP [Concomitant]
     Active Substance: ACETAMINOPHEN\HYDROCODONE
  10. METHYLPRED [Concomitant]
     Active Substance: METHYLPREDNISOLONE
  11. PORCHLORPER [Concomitant]
  12. SUCRALFATE. [Concomitant]
     Active Substance: SUCRALFATE
  13. LEVOFLOXACIN. [Concomitant]
     Active Substance: LEVOFLOXACIN
  14. LORATADINE. [Concomitant]
     Active Substance: LORATADINE
  15. GENERLAC [Concomitant]
     Active Substance: LACTULOSE
  16. CALCIUM CITRATE [Concomitant]
     Active Substance: CALCIUM CITRATE
  17. CARISOPRODOL. [Concomitant]
     Active Substance: CARISOPRODOL
  18. OMEPRAZOLE. [Concomitant]
     Active Substance: OMEPRAZOLE
  19. POLYETHYL [Concomitant]
  20. VITAMIN D3 [Suspect]
     Active Substance: CHOLECALCIFEROL
  21. ORENCIA [Suspect]
     Active Substance: ABATACEPT
     Indication: RHEUMATOID ARTHRITIS
     Route: 058
     Dates: start: 201202, end: 201804
  22. BUPROPION. [Concomitant]
     Active Substance: BUPROPION
  23. LAMOTRIGINE. [Concomitant]
     Active Substance: LAMOTRIGINE
  24. TIZANADINE [Concomitant]
     Active Substance: TIZANIDINE
  25. SYNTHROID [Concomitant]
     Active Substance: LEVOTHYROXINE SODIUM
  26. TYLENOL [Concomitant]
     Active Substance: ACETAMINOPHEN
  27. VITAMIN D2 [Concomitant]
     Active Substance: ERGOCALCIFEROL

REACTIONS (1)
  - Pneumonia [None]

NARRATIVE: CASE EVENT DATE: 201804
